FAERS Safety Report 13892414 (Version 1)
Quarter: 2017Q3

REPORT INFORMATION
  Report Type: Spontaneous
  Country: US (occurrence: US)
  Receive Date: 20170822
  Receipt Date: 20170822
  Transmission Date: 20171127
  Serious: Yes (Other)
  Sender: FDA-Public Use
  Company Number: US-ROCHE-728848

PATIENT
  Age: 49 Year
  Sex: Female
  Weight: 47.6 kg

DRUGS (2)
  1. ACTEMRA [Suspect]
     Active Substance: TOCILIZUMAB
     Indication: RHEUMATOID ARTHRITIS
     Dosage: FORM: INFUSION
     Route: 042
  2. ACTEMRA [Suspect]
     Active Substance: TOCILIZUMAB
     Dosage: DOSE: 192.72 KG
     Route: 042
     Dates: start: 20100830, end: 20100830

REACTIONS (4)
  - Hypertension [Recovered/Resolved]
  - Heart rate increased [Recovered/Resolved]
  - Dizziness [Recovered/Resolved]
  - Tinnitus [Recovered/Resolved]

NARRATIVE: CASE EVENT DATE: 20100830
